FAERS Safety Report 11588300 (Version 4)
Quarter: 2015Q4

REPORT INFORMATION
  Report Type: Spontaneous
  Country: GB (occurrence: GB)
  Receive Date: 20151002
  Receipt Date: 20151020
  Transmission Date: 20160304
  Serious: Yes (Hospitalization)
  Sender: FDA-Public Use
  Company Number: PHFR2015GB007139

PATIENT
  Sex: Female

DRUGS (1)
  1. LAMISIL [Suspect]
     Active Substance: TERBINAFINE HYDROCHLORIDE
     Indication: ONYCHOMYCOSIS
     Dosage: UNK
     Route: 065

REACTIONS (10)
  - Pain in extremity [Unknown]
  - Pain [Unknown]
  - Skin discolouration [Unknown]
  - Joint swelling [Unknown]
  - Abasia [Unknown]
  - Swelling [Unknown]
  - Malaise [Unknown]
  - Rash [Unknown]
  - Mental impairment [Unknown]
  - Swollen tongue [Unknown]
